FAERS Safety Report 9164756 (Version 1)
Quarter: 2013Q1

REPORT INFORMATION
  Report Type: Spontaneous
  Country: US (occurrence: US)
  Receive Date: 20130315
  Receipt Date: 20130315
  Transmission Date: 20140127
  Serious: No
  Sender: FDA-Public Use
  Company Number: US-PFIZER INC-2013084292

PATIENT
  Age: 56 Year
  Sex: Female

DRUGS (1)
  1. CAMPTOSAR [Suspect]
     Indication: PANCREATIC CARCINOMA
     Dosage: 369 MG, CYCLIC, EVERY 2 WEEKS
     Dates: start: 20130225

REACTIONS (2)
  - Malaise [Unknown]
  - Weight decreased [Unknown]
